FAERS Safety Report 10210444 (Version 1)
Quarter: 2014Q2

REPORT INFORMATION
  Report Type: Spontaneous
  Country: US (occurrence: None)
  Receive Date: 20140529
  Receipt Date: 20140529
  Transmission Date: 20141212
  Serious: Yes (Hospitalization)
  Sender: FDA-Public Use
  Company Number: None

PATIENT
  Age: 56 Year
  Sex: Male
  Weight: 81.6 kg

DRUGS (2)
  1. BEVACIZUMAB [Suspect]
     Indication: MALIGNANT GLIOMA
     Dosage: 10MG/KG, DAY 1 + 15, IV?
     Route: 042
     Dates: start: 20140424, end: 20140508
  2. CARBOPLATIN [Suspect]
     Indication: MALIGNANT GLIOMA
     Dosage: AUC 6, DAY 1, IV?
     Route: 042
     Dates: start: 20140424

REACTIONS (5)
  - Confusional state [None]
  - Mental status changes [None]
  - Oedema peripheral [None]
  - Malignant neoplasm progression [None]
  - Malignant glioma [None]
